FAERS Safety Report 4553306-X (Version None)
Quarter: 2005Q1

REPORT INFORMATION
  Report Type: 
  Country: None (occurrence: None)
  Receive Date: 20050112
  Receipt Date: 20041229
  Transmission Date: 20050727
  Serious: Yes (Hospitalization)
  Sender: FDA-Public Use
  Company Number: MK200412-0399-1

PATIENT
  Sex: Male

DRUGS (1)
  1. MORPHINE SULFATE [Suspect]

REACTIONS (1)
  - ANAPHYLACTIC REACTION [None]
